FAERS Safety Report 6044612-0 (Version None)
Quarter: 2009Q1

REPORT INFORMATION
  Report Type: 
  Country: None (occurrence: None)
  Receive Date: 20090120
  Receipt Date: 20090109
  Transmission Date: 20090719
  Serious: Yes (Hospitalization)
  Sender: FDA-Public Use
  Company Number: US-BIOGENIDEC-2008BI033675

PATIENT
  Age: 38 Year
  Sex: Female
  Weight: 96 kg

DRUGS (1)
  1. TYSABRI [Suspect]
     Indication: MULTIPLE SCLEROSIS
     Route: 042
     Dates: start: 20070614, end: 20080812

REACTIONS (7)
  - ANKLE FRACTURE [None]
  - CHOLELITHIASIS [None]
  - DYSPNOEA [None]
  - FALL [None]
  - GALLBLADDER ENLARGEMENT [None]
  - GALLBLADDER PERFORATION [None]
  - UTERINE OPERATION [None]
